FAERS Safety Report 9942371 (Version 2)
Quarter: 2014Q1

REPORT INFORMATION
  Report Type: Spontaneous
  Country: US (occurrence: US)
  Receive Date: 20140303
  Receipt Date: 20140320
  Transmission Date: 20141002
  Serious: Yes (Other)
  Sender: FDA-Public Use
  Company Number: US-TEVA-465215USA

PATIENT
  Age: 65 Year
  Sex: Female
  Weight: 82.17 kg

DRUGS (5)
  1. BUDESONIDE [Suspect]
  2. BROVANA [Suspect]
     Indication: RESPIRATORY DISORDER
     Dosage: PRN
     Route: 055
     Dates: start: 2014
  3. BROVANA [Suspect]
     Indication: PNEUMONIA
  4. BROVANA [Suspect]
     Indication: BRONCHITIS
  5. VITAMIN C WITH ZINC [Suspect]

REACTIONS (5)
  - Pneumonia [Not Recovered/Not Resolved]
  - Feeling cold [Recovered/Resolved]
  - Insomnia [Recovered/Resolved]
  - Nausea [Recovered/Resolved]
  - Drug administration error [Unknown]
